FAERS Safety Report 5034533-4 (Version None)
Quarter: 2006Q2

REPORT INFORMATION
  Report Type: 
  Country: None (occurrence: None)
  Receive Date: 20060621
  Receipt Date: 20060609
  Transmission Date: 20061013
  Serious: Yes (Other)
  Sender: FDA-Public Use
  Company Number: 2006074192

PATIENT
  Age: 38 Year
  Sex: Female

DRUGS (1)
  1. DEXTROMETHORPHAN HYDROBROMIDE [Suspect]
     Indication: EUPHORIC MOOD
     Dosage: 8 OUNCES 3-5 TIMES DAILY, ORAL
     Route: 048

REACTIONS (27)
  - ACNE [None]
  - ANXIETY [None]
  - CONSTIPATION [None]
  - DELUSION [None]
  - DIARRHOEA [None]
  - DRUG ABUSER [None]
  - DRUG DEPENDENCE [None]
  - DRUG TOLERANCE INCREASED [None]
  - DRUG WITHDRAWAL SYNDROME [None]
  - EUPHORIC MOOD [None]
  - FEELING COLD [None]
  - FEELING OF RELAXATION [None]
  - HALLUCINATION, TACTILE [None]
  - HALLUCINATION, VISUAL [None]
  - INSOMNIA [None]
  - INTENTIONAL DRUG MISUSE [None]
  - LEGAL PROBLEM [None]
  - MARITAL PROBLEM [None]
  - MYALGIA [None]
  - NIGHT SWEATS [None]
  - PARANOIA [None]
  - POISONING [None]
  - PSYCHOTIC DISORDER [None]
  - RESTLESSNESS [None]
  - THINKING ABNORMAL [None]
  - UNEMPLOYMENT [None]
  - WEIGHT INCREASED [None]
